FAERS Safety Report 25180032 (Version 1)
Quarter: 2025Q2

REPORT INFORMATION
  Report Type: Spontaneous
  Country: US (occurrence: None)
  Receive Date: 20250409
  Receipt Date: 20250409
  Transmission Date: 20250716
  Serious: Yes (Hospitalization)
  Sender: FDA-CTU
  Company Number: None

PATIENT
  Age: 61 Year
  Sex: Male
  Weight: 95 kg

DRUGS (1)
  1. WARFARIN SODIUM [Suspect]
     Active Substance: WARFARIN SODIUM
     Indication: Aortic valve replacement
     Dosage: FREQUENCY : DAILY;?
     Route: 048
     Dates: start: 20180817, end: 20240307

REACTIONS (3)
  - Subdural haematoma [None]
  - International normalised ratio increased [None]
  - Fall [None]

NARRATIVE: CASE EVENT DATE: 20250307
